FAERS Safety Report 7491158-9 (Version None)
Quarter: 2011Q2

REPORT INFORMATION
  Report Type: 
  Country: None (occurrence: None)
  Receive Date: 20110518
  Receipt Date: 20110518
  Transmission Date: 20111010
  Serious: Yes (Life-Threatening, Hospitalization, Other)
  Sender: FDA-Public Use
  Company Number: None

PATIENT
  Sex: Male
  Weight: 106.5953 kg

DRUGS (1)
  1. MIRALAX [Suspect]
     Indication: CONSTIPATION
     Dates: start: 20110112, end: 20110116

REACTIONS (7)
  - HYPERSENSITIVITY [None]
  - PRODUCT LABEL ISSUE [None]
  - CHILLS [None]
  - DYSPNOEA [None]
  - ECONOMIC PROBLEM [None]
  - DIZZINESS [None]
  - CARDIAC DISORDER [None]
